FAERS Safety Report 9372381 (Version 1)
Quarter: 2013Q2

REPORT INFORMATION
  Report Type: Report from Study
  Country: US (occurrence: US)
  Receive Date: 20130627
  Receipt Date: 20130627
  Transmission Date: 20140414
  Serious: Yes (Death)
  Sender: FDA-Public Use
  Company Number: US-MYLANLABS-2012S1022109

PATIENT
  Age: 80 Year
  Sex: Female

DRUGS (8)
  1. CLOZAPINE TABLETS [Suspect]
     Route: 048
     Dates: start: 2007, end: 201208
  2. CLOZAPINE TABLETS [Suspect]
     Route: 048
     Dates: start: 20120828
  3. SINEMET [Concomitant]
     Dosage: 20MG/250MG
     Route: 048
  4. LISINOPRIL [Concomitant]
     Route: 048
  5. TRAZODONE [Concomitant]
     Route: 048
  6. ZOLOFT [Concomitant]
     Route: 048
  7. MIDODRINE [Concomitant]
     Route: 048
     Dates: start: 2011
  8. TRIHEXYPHENIDYL [Concomitant]
     Route: 048

REACTIONS (1)
  - Death [Fatal]
